FAERS Safety Report 18777305 (Version 2)
Quarter: 2022Q1

REPORT INFORMATION
  Report Type: Report from Study
  Country: US (occurrence: US)
  Receive Date: 20210122
  Receipt Date: 20220114
  Transmission Date: 20220423
  Serious: No
  Sender: FDA-Public Use
  Company Number: US-REGENERON PHARMACEUTICALS, INC.-2021-11672

PATIENT
  Age: 59 Year
  Sex: Male

DRUGS (1)
  1. CASIRIVIMAB\IMDEVIMAB [Suspect]
     Active Substance: CASIRIVIMAB\IMDEVIMAB
     Indication: COVID-19
     Dosage: CASIRIVIMAB 5,280 MG AND IMDEVIMAB 1,200 MG, SINGLE, IV
     Route: 042
     Dates: start: 20201231, end: 20201231

REACTIONS (3)
  - Overdose [Unknown]
  - Product packaging confusion [Unknown]
  - Product preparation error [Unknown]

NARRATIVE: CASE EVENT DATE: 20201231
